FAERS Safety Report 24165714 (Version 1)
Quarter: 2024Q3

REPORT INFORMATION
  Report Type: Spontaneous
  Country: US (occurrence: US)
  Receive Date: 20240802
  Receipt Date: 20240802
  Transmission Date: 20241017
  Serious: No
  Sender: ACCORD
  Company Number: US-Accord-402836

PATIENT
  Age: 54 Year
  Sex: Female

DRUGS (3)
  1. DOCETAXEL [Suspect]
     Active Substance: DOCETAXEL\DOCETAXEL ANHYDROUS
     Indication: Breast cancer
     Dates: start: 20210517, end: 20210830
  2. ADRIAMYCIN [Suspect]
     Active Substance: DOXORUBICIN HYDROCHLORIDE
     Indication: Breast cancer
     Dates: start: 20210517, end: 20210830
  3. CYCLOPHOSPHAMIDE [Suspect]
     Active Substance: CYCLOPHOSPHAMIDE
     Indication: Breast cancer
     Dates: start: 20210517, end: 20210830

REACTIONS (2)
  - Dry eye [Unknown]
  - Dacryostenosis acquired [Not Recovered/Not Resolved]

NARRATIVE: CASE EVENT DATE: 20210517
